FAERS Safety Report 16870314 (Version 1)
Quarter: 2019Q3

REPORT INFORMATION
  Report Type: Spontaneous
  Country: US (occurrence: US)
  Receive Date: 20190930
  Receipt Date: 20190930
  Transmission Date: 20191005
  Serious: Yes (Other)
  Sender: FDA-Public Use
  Company Number: US-ASTRAZENECA-2019SF15714

PATIENT
  Age: 89 Year
  Sex: Female
  Weight: 102.1 kg

DRUGS (2)
  1. BEVESPI AEROSPHERE [Suspect]
     Active Substance: FORMOTEROL FUMARATE\GLYCOPYRROLATE
     Indication: MULTIPLE ALLERGIES
     Dosage: 9/4.8 UG, 2 PUFFS TWO TIMES A DAY
     Route: 055
     Dates: start: 2015
  2. BEVESPI AEROSPHERE [Suspect]
     Active Substance: FORMOTEROL FUMARATE\GLYCOPYRROLATE
     Indication: CHRONIC OBSTRUCTIVE PULMONARY DISEASE
     Dosage: 9/4.8 UG, 2 PUFFS TWO TIMES A DAY
     Route: 055
     Dates: start: 2015

REACTIONS (3)
  - Device failure [Unknown]
  - Colon cancer recurrent [Recovering/Resolving]
  - Respiratory failure [Recovered/Resolved]

NARRATIVE: CASE EVENT DATE: 2018
